FAERS Safety Report 8033990-9 (Version None)
Quarter: 2012Q1

REPORT INFORMATION
  Report Type: 
  Country: None (occurrence: None)
  Receive Date: 20120110
  Receipt Date: 20120106
  Transmission Date: 20120608
  Serious: Yes (Hospitalization)
  Sender: FDA-Public Use
  Company Number: US-MERCK-1112USA00907

PATIENT
  Age: 36 Month
  Sex: Female

DRUGS (1)
  1. PRINZIDE [Suspect]
     Route: 048
     Dates: start: 20111203, end: 20111203

REACTIONS (10)
  - HYPERSOMNIA [None]
  - THROAT TIGHTNESS [None]
  - CONSTIPATION [None]
  - DYSARTHRIA [None]
  - ACCIDENTAL DRUG INTAKE BY CHILD [None]
  - COUGH [None]
  - VOMITING [None]
  - OCULAR HYPERAEMIA [None]
  - RETCHING [None]
  - ACCIDENTAL OVERDOSE [None]
